FAERS Safety Report 4850547-9 (Version None)
Quarter: 2005Q4

REPORT INFORMATION
  Report Type: 
  Country: None (occurrence: None)
  Receive Date: 20051208
  Receipt Date: 20051125
  Transmission Date: 20060501
  Serious: Yes (Death, Other)
  Sender: FDA-Public Use
  Company Number: 2005028957

PATIENT
  Sex: Male

DRUGS (3)
  1. FRAGMIN [Suspect]
     Indication: ABORTION SPONTANEOUS
     Dosage: 2500 I.U. (2500 I.U., 1 IN 1 D)
     Dates: start: 20041030, end: 20050126
  2. FRAGMIN [Suspect]
     Indication: PROTEIN S DEFICIENCY
     Dosage: 2500 I.U. (2500 I.U., 1 IN 1 D)
     Dates: start: 20041030, end: 20050126
  3. FERROUS SULPHATE (FERROUS SULFATE) [Concomitant]

REACTIONS (2)
  - APGAR SCORE LOW [None]
  - DRUG EXPOSURE DURING PREGNANCY [None]
